FAERS Safety Report 6942181-1 (Version None)
Quarter: 2010Q3

REPORT INFORMATION
  Report Type: 
  Country: None (occurrence: None)
  Receive Date: 20100826
  Receipt Date: 20100726
  Transmission Date: 20110219
  Serious: No
  Sender: FDA-Public Use
  Company Number: US-BAYER-201016656BCC

PATIENT
  Age: 91 Year
  Sex: Female
  Weight: 56 kg

DRUGS (11)
  1. ALEVE [Suspect]
     Indication: ARTHRALGIA
     Dosage: TOTAL DAILY DOSE: 440 MG  UNIT DOSE: 220 MG
     Route: 048
     Dates: start: 20080101
  2. ASPIRIN [Concomitant]
     Route: 065
  3. NATURE MADE 50 PLUS [Concomitant]
     Route: 065
  4. VITAMIN E [Concomitant]
     Route: 065
  5. ZOCOR [Concomitant]
     Dosage: TOTAL DAILY DOSE: 20 MG  UNIT DOSE: 20 MG
     Route: 065
  6. AMBIEN [Concomitant]
     Dosage: TOTAL DAILY DOSE: 5 MG  UNIT DOSE: 5 MG
     Route: 065
  7. SPIRONOLACTONE [Concomitant]
     Dosage: TOTAL DAILY DOSE: 25 MG  UNIT DOSE: 25 MG
     Route: 065
  8. VITAMIN D [Concomitant]
     Route: 065
  9. MG [Concomitant]
     Route: 065
  10. BENADRYL [Concomitant]
     Dosage: TOTAL DAILY DOSE: 25 MG  UNIT DOSE: 25 MG
     Route: 065
  11. OXYBUTYNIN ER [Concomitant]
     Dosage: TOTAL DAILY DOSE: 5 MG  UNIT DOSE: 5 MG
     Route: 065

REACTIONS (3)
  - BLOOD CREATININE INCREASED [None]
  - BLOOD UREA INCREASED [None]
  - GLOMERULAR FILTRATION RATE DECREASED [None]
